FAERS Safety Report 7245992-0 (Version None)
Quarter: 2011Q1

REPORT INFORMATION
  Report Type: 
  Country: None (occurrence: None)
  Receive Date: 20110126
  Receipt Date: 20110121
  Transmission Date: 20110831
  Serious: Yes (Hospitalization, Other)
  Sender: FDA-Public Use
  Company Number: US-ABBOTT-11P-163-0700269-00

PATIENT
  Sex: Male
  Weight: 66.284 kg

DRUGS (3)
  1. PROBIOTICS [Concomitant]
     Indication: PRODUCT USED FOR UNKNOWN INDICATION
  2. OXYCONTIN [Concomitant]
     Indication: PAIN
  3. HUMIRA [Suspect]
     Indication: CROHN'S DISEASE
     Dates: start: 20070101

REACTIONS (3)
  - ANORECTAL DISORDER [None]
  - WEIGHT DECREASED [None]
  - GASTROINTESTINAL STOMA COMPLICATION [None]
